FAERS Safety Report 25402327 (Version 9)
Quarter: 2025Q3

REPORT INFORMATION
  Report Type: Report from Study
  Country: CL (occurrence: CL)
  Receive Date: 20250605
  Receipt Date: 20250825
  Transmission Date: 20251021
  Serious: Yes (Hospitalization, Other)
  Sender: TAKEDA
  Company Number: CL-TAKEDA-2025TUS039470

PATIENT
  Age: 12 Year
  Sex: Male

DRUGS (3)
  1. IDURSULFASE [Suspect]
     Active Substance: IDURSULFASE
     Indication: Enzyme supplementation
     Dosage: 0.5 MG/KG, 1/WEEK
  2. IDURSULFASE [Suspect]
     Active Substance: IDURSULFASE
     Dosage: 0.5 MG/KG, 1/WEEK
  3. IDURSULFASE [Suspect]
     Active Substance: IDURSULFASE
     Dosage: 0.5 MG/KG, 1/WEEK

REACTIONS (5)
  - Device related infection [Unknown]
  - Endocarditis bacterial [Recovered/Resolved]
  - Infection [Not Recovered/Not Resolved]
  - Pyrexia [Recovering/Resolving]
  - Discouragement [Unknown]

NARRATIVE: CASE EVENT DATE: 20250417
